FAERS Safety Report 11113685 (Version 5)
Quarter: 2015Q3

REPORT INFORMATION
  Report Type: Spontaneous
  Country: US (occurrence: US)
  Receive Date: 20150514
  Receipt Date: 20150904
  Transmission Date: 20151125
  Serious: Yes (Other)
  Sender: FDA-Public Use
  Company Number: US-ASTRAZENECA-2015SE44284

PATIENT
  Age: 65 Year
  Sex: Female
  Weight: 82 kg

DRUGS (11)
  1. NEXIUM 24HR [Suspect]
     Active Substance: ESOMEPRAZOLE MAGNESIUM
     Indication: DYSPEPSIA
     Route: 048
     Dates: start: 2014, end: 20150428
  2. BENTYL [Concomitant]
     Active Substance: DICYCLOMINE HYDROCHLORIDE
     Indication: FLATULENCE
     Dosage: 10 MG, 3-4 /DAY
  3. SUCRALFATE. [Concomitant]
     Active Substance: SUCRALFATE
     Indication: GASTRIC POLYPS
     Route: 048
  4. TAGAMET [Suspect]
     Active Substance: CIMETIDINE
     Route: 065
     Dates: start: 20150501
  5. TAGAMET [Suspect]
     Active Substance: CIMETIDINE
     Route: 065
     Dates: start: 20150501
  6. MISOPROSTOL. [Concomitant]
     Active Substance: MISOPROSTOL
     Indication: GASTRIC DISORDER
  7. HYOSCYAMINE. [Concomitant]
     Active Substance: HYOSCYAMINE
     Indication: GASTROINTESTINAL PAIN
  8. BENTYL [Concomitant]
     Active Substance: DICYCLOMINE HYDROCHLORIDE
     Indication: ABDOMINAL PAIN UPPER
     Dosage: 10 MG, 3-4 /DAY
  9. PHAZYME [Suspect]
     Active Substance: DIMETHICONE 410
     Indication: FLATULENCE
     Route: 065
  10. NEXIUM 24HR [Suspect]
     Active Substance: ESOMEPRAZOLE MAGNESIUM
     Indication: DYSPEPSIA
     Route: 048
     Dates: start: 2014, end: 2014
  11. SUCRALFATE. [Concomitant]
     Active Substance: SUCRALFATE
     Indication: GASTRITIS
     Route: 048

REACTIONS (18)
  - Gastric disorder [Recovered/Resolved]
  - Flatulence [Recovered/Resolved]
  - Abdominal pain upper [Recovered/Resolved]
  - Dyspepsia [Unknown]
  - Eructation [Recovered/Resolved]
  - Product quality issue [Unknown]
  - Gastritis [Recovered/Resolved]
  - Gastric polyps [Recovered/Resolved]
  - Gastrointestinal pain [Recovered/Resolved]
  - Vomiting [Recovered/Resolved]
  - Weight decreased [Recovered/Resolved]
  - Abdominal distension [Recovered/Resolved]
  - Abdominal discomfort [Recovered/Resolved]
  - Off label use [Recovered/Resolved]
  - Drug ineffective [Unknown]
  - Diverticulitis [Unknown]
  - Hypophagia [Recovered/Resolved]
  - Abdominal pain [Recovered/Resolved]

NARRATIVE: CASE EVENT DATE: 2014
